FAERS Safety Report 5421132-5 (Version None)
Quarter: 2007Q3

REPORT INFORMATION
  Report Type: 
  Country: None (occurrence: None)
  Receive Date: 20070821
  Receipt Date: 20070627
  Transmission Date: 20080115
  Serious: Yes (Death, Hospitalization, Other)
  Sender: FDA-Public Use
  Company Number: US-PURDUE-USA_2007_0028170

PATIENT
  Sex: Female

DRUGS (3)
  1. OXYCONTIN [Suspect]
     Dosage: UNK, SEE TEXT
     Dates: start: 19990101, end: 20010101
  2. OXYIR [Concomitant]
  3. OXYCODONE HCL [Concomitant]

REACTIONS (20)
  - ACCIDENTAL OVERDOSE [None]
  - AGGRESSION [None]
  - ANXIETY [None]
  - DEPRESSION [None]
  - DRUG ABUSER [None]
  - DRUG DEPENDENCE [None]
  - DRUG TOLERANCE INCREASED [None]
  - DRUG TOXICITY [None]
  - GENERAL PHYSICAL HEALTH DETERIORATION [None]
  - INADEQUATE ANALGESIA [None]
  - MEMORY IMPAIRMENT [None]
  - MENTAL IMPAIRMENT [None]
  - MULTIPLE DRUG OVERDOSE ACCIDENTAL [None]
  - PANIC DISORDER [None]
  - RESPIRATORY DEPRESSION [None]
  - ROAD TRAFFIC ACCIDENT [None]
  - SOCIAL AVOIDANT BEHAVIOUR [None]
  - SUICIDAL IDEATION [None]
  - SUICIDE ATTEMPT [None]
  - WEIGHT DECREASED [None]
